FAERS Safety Report 5682524-2 (Version None)
Quarter: 2008Q1

REPORT INFORMATION
  Report Type: 
  Country: None (occurrence: None)
  Receive Date: 20080327
  Receipt Date: 20071214
  Transmission Date: 20080703
  Serious: No
  Sender: FDA-Public Use
  Company Number: US-BRISTOL-MYERS SQUIBB COMPANY-14015580

PATIENT
  Age: 44 Year
  Sex: Female
  Weight: 88 kg

DRUGS (6)
  1. SPRYCEL [Suspect]
     Indication: CHRONIC MYELOID LEUKAEMIA
     Dates: start: 20070101
  2. SYNTHROID [Concomitant]
  3. ZYRTEC-D 12 HOUR [Concomitant]
  4. KYTRIL [Concomitant]
  5. ZOFRAN [Concomitant]
  6. IRON [Concomitant]

REACTIONS (1)
  - PALPITATIONS [None]
